FAERS Safety Report 8375824-9 (Version None)
Quarter: 2012Q2

REPORT INFORMATION
  Report Type: 
  Country: None (occurrence: None)
  Receive Date: 20120522
  Receipt Date: 20120508
  Transmission Date: 20120825
  Serious: Yes (Other)
  Sender: FDA-Public Use
  Company Number: US-JNJFOC-20120508239

PATIENT
  Sex: Female
  Weight: 47.17 kg

DRUGS (6)
  1. KLOR-CON [Concomitant]
     Indication: NUTRITIONAL SUPPORT
     Route: 048
  2. TOPROL-XL [Concomitant]
     Indication: BLOOD PRESSURE
     Dosage: 25MG/AT NIGHT
     Route: 065
  3. DURAGESIC-100 [Suspect]
     Indication: PAIN
     Route: 062
     Dates: end: 20090101
  4. TIAZAC [Concomitant]
     Indication: CARDIAC DISORDER
     Route: 048
  5. DURAGESIC-100 [Suspect]
     Route: 062
     Dates: start: 20090101
  6. HYZAAR [Concomitant]
     Indication: BLOOD PRESSURE
     Dosage: 50/1.5MG
     Route: 048

REACTIONS (9)
  - DIPLOPIA [None]
  - ADVERSE EVENT [None]
  - INSOMNIA [None]
  - SYNCOPE [None]
  - LOSS OF CONSCIOUSNESS [None]
  - BLOOD PRESSURE FLUCTUATION [None]
  - HYPERHIDROSIS [None]
  - DRUG ADMINISTERED AT INAPPROPRIATE SITE [None]
  - PRODUCT QUALITY ISSUE [None]
